FAERS Safety Report 6536584-7 (Version None)
Quarter: 2010Q1

REPORT INFORMATION
  Report Type: 
  Country: None (occurrence: None)
  Receive Date: 20100113
  Receipt Date: 20100104
  Transmission Date: 20100710
  Serious: No
  Sender: FDA-Public Use
  Company Number: US-B.I. PHARMACEUTICALS,INC./RIDGEFIELD-2010-BP-00066BP

PATIENT
  Age: 70 Year
  Sex: Female

DRUGS (2)
  1. MIRAPEX [Suspect]
     Indication: PARKINSON'S DISEASE
     Dosage: 1.5 MG
     Route: 048
     Dates: start: 20091001
  2. SELEGILINE HCL [Concomitant]

REACTIONS (3)
  - DROOLING [None]
  - HALLUCINATION [None]
  - POOR QUALITY SLEEP [None]
